FAERS Safety Report 9884385 (Version 1)
Quarter: 2014Q1

REPORT INFORMATION
  Report Type: Spontaneous
  Country: US (occurrence: US)
  Receive Date: 20140210
  Receipt Date: 20140210
  Transmission Date: 20141002
  Serious: No
  Sender: FDA-Public Use
  Company Number: US-ALLERGAN-1319037US

PATIENT
  Age: 41 Year
  Sex: Female

DRUGS (1)
  1. BOTOX [Suspect]
     Indication: MIGRAINE
     Dosage: 200 UNITS, SINGLE
     Route: 030
     Dates: start: 20131126, end: 20131126

REACTIONS (4)
  - Musculoskeletal stiffness [Unknown]
  - Off label use [Unknown]
  - Headache [Unknown]
  - Nausea [Unknown]
